FAERS Safety Report 9384673 (Version 1)
Quarter: 2013Q3

REPORT INFORMATION
  Report Type: Spontaneous
  Country: US (occurrence: US)
  Receive Date: 20130705
  Receipt Date: 20130705
  Transmission Date: 20140515
  Serious: Yes (Hospitalization)
  Sender: FDA-Public Use
  Company Number: US-PFIZER INC-2013197439

PATIENT
  Age: 68 Year
  Sex: Female
  Weight: 104.31 kg

DRUGS (3)
  1. REVATIO [Suspect]
     Indication: PULMONARY ARTERIAL HYPERTENSION
     Dosage: 20 MG, 3X/DAY
     Route: 048
     Dates: start: 201302
  2. ADVAIR [Concomitant]
     Dosage: 250/50 MG, 2X/DAY
  3. LASIX [Concomitant]
     Dosage: 40 MG, UNK
     Route: 048

REACTIONS (2)
  - Hypoxia [Unknown]
  - Dyspnoea [Unknown]
